FAERS Safety Report 10160619 (Version 1)
Quarter: 2014Q2

REPORT INFORMATION
  Report Type: Spontaneous
  Country: GB (occurrence: GB)
  Receive Date: 20140508
  Receipt Date: 20140508
  Transmission Date: 20141212
  Serious: Yes (Other)
  Sender: FDA-Public Use
  Company Number: PHFR2014GB003283

PATIENT
  Age: 36 Year
  Sex: Female
  Weight: 78.92 kg

DRUGS (5)
  1. CARBAMAZEPINE [Suspect]
     Indication: TRIGEMINAL NEURALGIA
     Dosage: 400 MG, UNK
     Route: 048
     Dates: start: 20140414, end: 20140424
  2. AMITRIPTYLINE [Concomitant]
     Dosage: UNK UKN, UNK
  3. CERAZETTE [Concomitant]
     Dosage: UNK UKN, (TAKEN FOR LAST 3 YEARS)
  4. MIGRALEVE [Concomitant]
     Dosage: UNK UKN, UNK
  5. SUMATRIPTAN [Concomitant]
     Dosage: UNK UKN, UNK

REACTIONS (3)
  - Pain in extremity [Not Recovered/Not Resolved]
  - Musculoskeletal stiffness [Not Recovered/Not Resolved]
  - Rash [Not Recovered/Not Resolved]
